FAERS Safety Report 9346457 (Version 2)
Quarter: 2013Q3

REPORT INFORMATION
  Report Type: Report from Study
  Country: US (occurrence: US)
  Receive Date: 20130613
  Receipt Date: 20130703
  Transmission Date: 20140515
  Serious: Yes (Hospitalization)
  Sender: FDA-Public Use
  Company Number: US-ABBOTT-13P-163-1100163-00

PATIENT
  Sex: Male
  Weight: 109 kg

DRUGS (2)
  1. HUMIRA [Suspect]
     Indication: CROHN^S DISEASE
     Dates: start: 201301
  2. HUMIRA [Suspect]
     Dates: start: 20130425

REACTIONS (3)
  - Hidradenitis [Not Recovered/Not Resolved]
  - Groin abscess [Not Recovered/Not Resolved]
  - Incorrect dose administered [Recovered/Resolved]
